FAERS Safety Report 12051850 (Version 1)
Quarter: 2016Q1

REPORT INFORMATION
  Report Type: Spontaneous
  Country: US (occurrence: None)
  Receive Date: 20160208
  Receipt Date: 20160208
  Transmission Date: 20160526
  Serious: No
  Sender: FDA-Public Use
  Company Number: None

PATIENT
  Age: 52 Year
  Sex: Male

DRUGS (1)
  1. ASPIRIN. [Suspect]
     Active Substance: ASPIRIN
     Dosage: UNKNOWN- EARLY 90S
     Route: 048

REACTIONS (3)
  - Gastrointestinal haemorrhage [None]
  - Epigastric discomfort [None]
  - Blood iron decreased [None]

NARRATIVE: CASE EVENT DATE: 19900101
